FAERS Safety Report 21763206 (Version 1)
Quarter: 2022Q4

REPORT INFORMATION
  Report Type: Spontaneous
  Country: US (occurrence: None)
  Receive Date: 20221221
  Receipt Date: 20221221
  Transmission Date: 20230113
  Serious: Yes (Hospitalization)
  Sender: FDA-Public Use
  Company Number: None

PATIENT
  Age: 71 Year
  Sex: Female
  Weight: 79 kg

DRUGS (3)
  1. CARBOPLATIN [Suspect]
     Active Substance: CARBOPLATIN
     Dates: end: 20220517
  2. DURVALUMAB [Suspect]
     Active Substance: DURVALUMAB
     Dates: end: 20221013
  3. TAXOL [Suspect]
     Active Substance: PACLITAXEL
     Dates: end: 20220517

REACTIONS (3)
  - Chronic obstructive pulmonary disease [None]
  - Pneumonia [None]
  - Atrial fibrillation [None]

NARRATIVE: CASE EVENT DATE: 20221028
